FAERS Safety Report 18431512 (Version 1)
Quarter: 2020Q4

REPORT INFORMATION
  Report Type: Spontaneous
  Country: US (occurrence: US)
  Receive Date: 20201027
  Receipt Date: 20201027
  Transmission Date: 20210114
  Serious: Yes (Other)
  Sender: FDA-Public Use
  Company Number: None

PATIENT
  Age: 52 Year
  Sex: Female
  Weight: 78.75 kg

DRUGS (6)
  1. ALBUTEROL SULFATE INHALATION AEROSOL HFA [Suspect]
     Active Substance: ALBUTEROL SULFATE
     Indication: ASTHMA
     Dosage: ?          QUANTITY:200 PUFF(S);?
     Route: 055
     Dates: start: 20201010, end: 20201026
  2. ADVIL [Concomitant]
     Active Substance: IBUPROFEN
  3. PULSE OX [Concomitant]
  4. NEBULIZER [Concomitant]
     Active Substance: DEVICE
  5. BENADRYL [Concomitant]
     Active Substance: DIPHENHYDRAMINE HYDROCHLORIDE
  6. INHALER [Concomitant]
     Active Substance: UNSPECIFIED INGREDIENT

REACTIONS (4)
  - Pharyngeal paraesthesia [None]
  - Throat irritation [None]
  - Device delivery system issue [None]
  - Cough [None]

NARRATIVE: CASE EVENT DATE: 20201010
